FAERS Safety Report 9959808 (Version 1)
Quarter: 2014Q1

REPORT INFORMATION
  Report Type: Report from Study
  Country: US (occurrence: US)
  Receive Date: 20140305
  Receipt Date: 20140305
  Transmission Date: 20141002
  Serious: No
  Sender: FDA-Public Use
  Company Number: US-ABBVIE-13P-163-1106028-00

PATIENT
  Age: 40 Year
  Sex: Male

DRUGS (5)
  1. HUMIRA [Suspect]
     Indication: CROHN^S DISEASE
     Dates: start: 20130103
  2. HYDROXYCHLOROQUINE [Concomitant]
     Indication: ARTHRALGIA
     Dosage: GENERIC PLAQUENIL
  3. ROPINIROLE [Concomitant]
     Indication: RESTLESS LEGS SYNDROME
     Dosage: 1 MG DAILY
  4. ATENOLOL [Concomitant]
     Indication: BLOOD PRESSURE
     Dosage: DAILY
  5. ZOLOFT [Concomitant]
     Indication: DEPRESSION
     Dosage: 100 MG DAILY

REACTIONS (2)
  - Injection site pain [Recovered/Resolved]
  - Injection site pain [Not Recovered/Not Resolved]
